FAERS Safety Report 22010218 (Version 1)
Quarter: 2023Q1

REPORT INFORMATION
  Report Type: Spontaneous
  Country: US (occurrence: US)
  Receive Date: 20230220
  Receipt Date: 20230220
  Transmission Date: 20230417
  Serious: No
  Sender: FDA-Public Use
  Company Number: US-BRISTOL-MYERS SQUIBB COMPANY-2023-023709

PATIENT
  Age: 62 Year
  Sex: Female

DRUGS (1)
  1. THALOMID [Suspect]
     Active Substance: THALIDOMIDE
     Indication: Subacute cutaneous lupus erythematosus
     Route: 048
     Dates: start: 202302

REACTIONS (10)
  - Nausea [Unknown]
  - Pain [Unknown]
  - Fatigue [Unknown]
  - Oedema [Unknown]
  - Swelling [Unknown]
  - Constipation [Unknown]
  - Gastrointestinal disorder [Unknown]
  - Abdominal discomfort [Unknown]
  - Off label use [Unknown]
  - Infrequent bowel movements [Unknown]
